FAERS Safety Report 5464343-5 (Version None)
Quarter: 2007Q3

REPORT INFORMATION
  Report Type: 
  Country: None (occurrence: None)
  Receive Date: 20070921
  Receipt Date: 20070912
  Transmission Date: 20080115
  Serious: Yes (Hospitalization)
  Sender: FDA-Public Use
  Company Number: IT-ROCHE-517251

PATIENT
  Age: 69 Year
  Sex: Male

DRUGS (5)
  1. TICLID [Suspect]
     Route: 048
     Dates: start: 20060901, end: 20070712
  2. ASPIRIN [Suspect]
     Route: 048
     Dates: start: 20060901, end: 20070712
  3. METFORMIN [Concomitant]
     Route: 048
  4. TRENTAL [Concomitant]
     Route: 048
  5. SIVASTIN [Concomitant]
     Route: 048

REACTIONS (3)
  - ANAEMIA [None]
  - GASTRIC HAEMORRHAGE [None]
  - SYNCOPE [None]
